FAERS Safety Report 9486620 (Version 1)
Quarter: 2013Q3

REPORT INFORMATION
  Report Type: Spontaneous
  Country: BR (occurrence: BR)
  Receive Date: 20130829
  Receipt Date: 20130829
  Transmission Date: 20140515
  Serious: Yes (Other)
  Sender: FDA-Public Use
  Company Number: BR-PFIZER INC-2013246943

PATIENT
  Age: 42 Year
  Sex: Female

DRUGS (3)
  1. LYRICA [Suspect]
     Indication: SPINAL PAIN
     Dosage: 75 MG, 2X/DAY
     Route: 048
     Dates: start: 20101107, end: 201304
  2. AMITRIL [Concomitant]
     Indication: DEPRESSION
     Dosage: 1 ^CP^ ONCE DAILY
  3. DICLOFENAC [Concomitant]
     Indication: PAIN
     Dosage: 1 ^CP^ ONCE DAILY

REACTIONS (5)
  - Cerebrospinal fluid leakage [Unknown]
  - Intervertebral disc protrusion [Unknown]
  - Intervertebral disc space narrowing [Unknown]
  - Cerebrospinal fistula [Unknown]
  - Headache [Unknown]
